FAERS Safety Report 11169143 (Version 2)
Quarter: 2015Q2

REPORT INFORMATION
  Report Type: Report from Study
  Country: US (occurrence: US)
  Receive Date: 20150605
  Receipt Date: 20150618
  Transmission Date: 20150821
  Serious: Yes (Death, Other)
  Sender: FDA-Public Use
  Company Number: US-ABBVIE-15P-163-1402929-00

PATIENT
  Age: 50 Year
  Sex: Male

DRUGS (1)
  1. DEPAKOTE [Suspect]
     Active Substance: DIVALPROEX SODIUM
     Indication: PRODUCT USED FOR UNKNOWN INDICATION
     Route: 048
     Dates: start: 20140327

REACTIONS (4)
  - Death [Fatal]
  - Seizure [Recovered/Resolved]
  - Treatment noncompliance [Unknown]
  - Impaired work ability [Unknown]

NARRATIVE: CASE EVENT DATE: 2015
